FAERS Safety Report 4359886-1 (Version None)
Quarter: 2004Q2

REPORT INFORMATION
  Report Type: 
  Country: None (occurrence: None)
  Receive Date: 20040513
  Receipt Date: 20040430
  Transmission Date: 20050107
  Serious: Yes (Life-Threatening, Hospitalization)
  Sender: FDA-Public Use
  Company Number: 206253

PATIENT
  Age: 65 Year
  Sex: Male
  Weight: 105 kg

DRUGS (15)
  1. MABTHERA (RITUXIMAB) CONC FOR SOLUTION FOR INFUSION [Suspect]
     Indication: VASCULITIS
     Dosage: 800 MG, 2/WEEK, INTRAVENOUS
     Route: 042
     Dates: start: 20040310, end: 20040318
  2. CYCLOPHOSPHAMIDE [Suspect]
     Dosage: 50 MG, QD, ORAL
     Route: 048
  3. TENORMIN [Concomitant]
  4. MICARDIS [Concomitant]
  5. OGAST (LANSOPRAZOLE) [Concomitant]
  6. ZANEDIP (LERCANIDIPINE) [Concomitant]
  7. FOSAMAX [Concomitant]
  8. CACIT D3 (CALCIUM CARBONATE, CHOLECALCIFEROL) [Concomitant]
  9. STAGID (METFORMIN) [Concomitant]
  10. MIXTARD (INSULIN, INSULIN (SUSPENSION), ISOPHANE) [Concomitant]
  11. KARDEGIC (ASPIRIN DL-LYSINE) [Concomitant]
  12. DIAMOX [Concomitant]
  13. PREDNISONE TAB [Concomitant]
  14. ESBERIVEN (COUMARIN, HEPARIN SODIUM, MELILOT, RUTIN) [Concomitant]
  15. TAMSULOSIN (TAMSULOSIN HYDROCHLORIDE) [Concomitant]

REACTIONS (10)
  - ACUTE CORONARY SYNDROME [None]
  - ASTHENIA [None]
  - BEDRIDDEN [None]
  - BRONCHOSPASM [None]
  - INFLAMMATION [None]
  - LEUKOPENIA [None]
  - LYMPHOPENIA [None]
  - NEUTROPENIA [None]
  - PYREXIA [None]
  - RENAL FAILURE [None]
